FAERS Safety Report 10111265 (Version 1)
Quarter: 2014Q2

REPORT INFORMATION
  Report Type: Spontaneous
  Country: US (occurrence: US)
  Receive Date: 20140425
  Receipt Date: 20140425
  Transmission Date: 20141212
  Serious: Yes (Hospitalization)
  Sender: FDA-Public Use
  Company Number: US-BAYER-2014-060384

PATIENT
  Age: 54 Year
  Sex: Male

DRUGS (7)
  1. LEVITRA [Suspect]
     Dosage: UNK
  2. VIAGRA [Suspect]
     Dosage: 100 MG, UNK
  3. PRAVASTATINE [Suspect]
     Dosage: UNK
  4. PROZAC [Suspect]
  5. AMARYL [Suspect]
  6. LISINOPRIL [Suspect]
  7. FLOMAX [TAMSULOSIN HYDROCHLORIDE] [Suspect]
     Dosage: UNK

REACTIONS (2)
  - Myocardial infarction [None]
  - Acute myocardial infarction [None]
